FAERS Safety Report 8816102 (Version 1)
Quarter: 2012Q4

REPORT INFORMATION
  Report Type: 
  Country: US (occurrence: US)
  Receive Date: 20120928
  Receipt Date: 20120928
  Transmission Date: 20130627
  Serious: No
  Sender: FDA-Public Use
  Company Number: US-009507513-1209USA007914

PATIENT
  Sex: Male

DRUGS (4)
  1. REBETOL [Suspect]
     Indication: HEPATITIS C
     Dosage: UNK
     Dates: start: 20060101, end: 20070101
  2. REBETOL [Suspect]
     Dosage: UNK
     Dates: start: 20120728
  3. PEGASYS [Concomitant]
     Indication: HEPATITIS C
     Dosage: UNK
     Dates: start: 20060101, end: 20070101
  4. PEGASYS [Concomitant]
     Dosage: UNK
     Dates: start: 20120728

REACTIONS (6)
  - Drug ineffective [Unknown]
  - Fatigue [Unknown]
  - Nausea [Unknown]
  - Headache [Unknown]
  - Blood potassium decreased [Unknown]
  - Blood iron increased [Unknown]
